FAERS Safety Report 9603782 (Version 2)
Quarter: 2013Q4

REPORT INFORMATION
  Report Type: Spontaneous
  Country: US (occurrence: NZ)
  Receive Date: 20131008
  Receipt Date: 20131008
  Transmission Date: 20140711
  Serious: Yes (Other)
  Sender: FDA-Public Use
  Company Number: US-JNJFOC-20130916772

PATIENT
  Age: 9 Month
  Sex: Female

DRUGS (3)
  1. BRUFEN [Suspect]
     Route: 048
  2. BRUFEN [Suspect]
     Indication: PYREXIA
     Dosage: DURATION OF DRUG ADMINISTRATION: 2 DAYS??5MG/KG/DOSE; 7 DOSES WERE GIVEN OVER THE NEXT 40HRS
     Route: 048
  3. ORAL REHYDRATION SALT [Concomitant]
     Indication: PRODUCT USED FOR UNKNOWN INDICATION
     Route: 065

REACTIONS (3)
  - Vesicoureteric reflux [Unknown]
  - Renal failure acute [Recovering/Resolving]
  - Rash maculo-papular [Unknown]
